FAERS Safety Report 21259015 (Version 1)
Quarter: 2022Q3

REPORT INFORMATION
  Report Type: Spontaneous
  Country: US (occurrence: US)
  Receive Date: 20220826
  Receipt Date: 20220826
  Transmission Date: 20221027
  Serious: Yes (Other)
  Sender: FDA-Public Use
  Company Number: US-SA-SAC20220825000069

PATIENT
  Sex: Female
  Weight: 63 kg

DRUGS (1)
  1. DUPIXENT [Suspect]
     Active Substance: DUPILUMAB
     Indication: Dermatitis atopic
     Dosage: 300 MG, QOW,300 MG; EVERY 2 WEEKS
     Route: 058

REACTIONS (5)
  - Pulmonary oedema [Not Recovered/Not Resolved]
  - Chest pain [Not Recovered/Not Resolved]
  - Cough [Not Recovered/Not Resolved]
  - Connective tissue inflammation [Not Recovered/Not Resolved]
  - Chest discomfort [Not Recovered/Not Resolved]
